FAERS Safety Report 5304678-X (Version None)
Quarter: 2007Q2

REPORT INFORMATION
  Report Type: 
  Country: None (occurrence: None)
  Receive Date: 20070416
  Receipt Date: 20070330
  Transmission Date: 20071010
  Serious: Yes (Hospitalization)
  Sender: FDA-Public Use
  Company Number: MEDI-0005499

PATIENT
  Age: 12 Month
  Sex: Female
  Weight: 7 kg

DRUGS (11)
  1. SYNAGIS [Suspect]
     Indication: HEART DISEASE CONGENITAL
     Dosage: SEE IMAGE
     Route: 030
     Dates: start: 20061107, end: 20070131
  2. SYNAGIS [Suspect]
     Indication: HEART DISEASE CONGENITAL
     Dosage: SEE IMAGE
     Route: 030
     Dates: start: 20061107
  3. SYNAGIS [Suspect]
     Indication: HEART DISEASE CONGENITAL
     Dosage: SEE IMAGE
     Route: 030
     Dates: start: 20061205
  4. SYNAGIS [Suspect]
     Indication: HEART DISEASE CONGENITAL
     Dosage: SEE IMAGE
     Route: 030
     Dates: start: 20070102
  5. ZYMAFLUOR D (COLECALCIFEROL, SODIUM FLUORIDE) [Concomitant]
  6. FE II CHLORIDE (FERROUS CHLORIDE) [Concomitant]
  7. LEVOTHYROXINE SODIUM [Concomitant]
  8. SAB-SIMPLEX (DIMETICONE) [Concomitant]
  9. SULTANOL (SALBUTAMOL) [Concomitant]
  10. PULMICORT [Concomitant]
  11. NACL 0.9% (SODIUM CHLORIDE) [Concomitant]

REACTIONS (3)
  - CARDIAC FAILURE [None]
  - PNEUMONIA [None]
  - RESPIRATORY SYNCYTIAL VIRUS INFECTION [None]
